FAERS Safety Report 7903021-7 (Version None)
Quarter: 2011Q4

REPORT INFORMATION
  Report Type: 
  Country: None (occurrence: None)
  Receive Date: 20111103
  Receipt Date: 20111021
  Transmission Date: 20120403
  Serious: Yes (Other)
  Sender: FDA-Public Use
  Company Number: 2011SP045085

PATIENT
  Age: 47 Year
  Sex: Female

DRUGS (5)
  1. PROPRANOLOL [Concomitant]
  2. FLUOXETINE HCL [Concomitant]
  3. PEGINTERFERON ALFA-2B [Suspect]
     Indication: HEPATITIS C
     Dosage: 80 MCG
     Dates: start: 20110121
  4. RIBAVIRIN [Suspect]
     Indication: PRODUCT USED FOR UNKNOWN INDICATION
     Dosage: 6 DF; QD
  5. OMEPRAZOLE [Concomitant]

REACTIONS (10)
  - HAEMOGLOBIN DECREASED [None]
  - EPISTAXIS [None]
  - BLOOD THYROID STIMULATING HORMONE INCREASED [None]
  - RED BLOOD CELL COUNT DECREASED [None]
  - HAEMATOCRIT DECREASED [None]
  - PLATELET COUNT DECREASED [None]
  - SOMNOLENCE [None]
  - FATIGUE [None]
  - ASTHENIA [None]
  - WHITE BLOOD CELL COUNT DECREASED [None]
